FAERS Safety Report 22057761 (Version 1)
Quarter: 2023Q1

REPORT INFORMATION
  Report Type: Spontaneous
  Country: NL (occurrence: NL)
  Receive Date: 20230303
  Receipt Date: 20230303
  Transmission Date: 20230418
  Serious: Yes (Life-Threatening)
  Sender: FDA-Public Use
  Company Number: None

PATIENT
  Sex: Female
  Weight: 56 kg

DRUGS (5)
  1. LISINOPRIL [Interacting]
     Active Substance: LISINOPRIL
     Indication: Hypertension
     Dosage: 20 MILLIGRAM DAILY; DURATION 4 YEARS, BRAND NAME NOT SPECIFIED
     Dates: start: 20180823, end: 20230101
  2. ALTEPLASE [Interacting]
     Active Substance: ALTEPLASE
     Indication: Cerebral infarction
     Dosage: 0,9 MG/KG, MAX. 90 MG, RAND NAME NOT SPECIFIED, THERAPY END DATE: NASK
     Route: 065
     Dates: start: 20221231
  3. CALCIUMCARB/COLECALC [Concomitant]
     Indication: Product used for unknown indication
     Dosage: 500 MG (MILLIGRAMS)/800 UNITS,, 1,25G/800IE (500MG CA) / BRAND NAME NOT SPECIFIED, THERAPY START DAT
  4. ACENOCOUMAROL [Concomitant]
     Active Substance: ACENOCOUMAROL
     Indication: Product used for unknown indication
     Dosage: 1 MG, BRAND NAME NOT SPECIFIED, THERAPY START DATE AND END DATE: ASKU
  5. METOPROLOL [Concomitant]
     Active Substance: METOPROLOL
     Indication: Product used for unknown indication
     Dosage: 100 MG, BRAND NAME NOT SPECIFIED, THERAPY START DATE AND END DATE: ASKU

REACTIONS (6)
  - Drug interaction [Recovered/Resolved]
  - Dyspnoea [Recovered/Resolved]
  - Respiratory failure [Recovered/Resolved]
  - Lip swelling [Recovered/Resolved]
  - Pulmonary oedema [Recovered/Resolved]
  - Hypersensitivity [Recovered/Resolved]
